FAERS Safety Report 9247670 (Version 1)
Quarter: 2013Q2

REPORT INFORMATION
  Report Type: Spontaneous
  Country: DE (occurrence: DE)
  Receive Date: 20130423
  Receipt Date: 20130423
  Transmission Date: 20140414
  Serious: Yes (Hospitalization)
  Sender: FDA-Public Use
  Company Number: DE-ELI_LILLY_AND_COMPANY-DE201304004449

PATIENT
  Sex: Female

DRUGS (6)
  1. FORSTEO [Suspect]
     Indication: OSTEOPOROSIS
     Dosage: UNK, QD
     Route: 058
     Dates: start: 20120616, end: 201212
  2. INSULIN LISPRO [Concomitant]
     Dosage: UNK, QID
     Route: 065
  3. DEKRISTOL [Concomitant]
     Dosage: UNK, 2/M
     Route: 065
  4. CORTISONE [Concomitant]
     Dosage: UNK, UNKNOWN
     Route: 065
  5. ENBREL [Concomitant]
     Dosage: UNK, UNKNOWN
     Route: 065
  6. INSULIN [Concomitant]
     Dosage: UNK, UNKNOWN
     Route: 065

REACTIONS (1)
  - Rheumatic disorder [Not Recovered/Not Resolved]
